FAERS Safety Report 9511155 (Version 1)
Quarter: 2013Q3

REPORT INFORMATION
  Report Type: Spontaneous
  Country: US (occurrence: None)
  Receive Date: 20130909
  Receipt Date: 20130909
  Transmission Date: 20140515
  Serious: Yes (Other)
  Sender: FDA-Public Use
  Company Number: None

PATIENT
  Age: 50 Year
  Sex: Male

DRUGS (2)
  1. FULYZAQ [Suspect]
     Indication: DIARRHOEA
     Route: 048
     Dates: start: 20130618, end: 20130906
  2. FULYZAQ [Suspect]
     Indication: HIV INFECTION
     Route: 048
     Dates: start: 20130618, end: 20130906

REACTIONS (2)
  - Muscle spasms [None]
  - Drug ineffective [None]
